FAERS Safety Report 16148941 (Version 4)
Quarter: 2019Q2

REPORT INFORMATION
  Report Type: Spontaneous
  Country: US (occurrence: US)
  Receive Date: 20190402
  Receipt Date: 20190610
  Transmission Date: 20190711
  Serious: Yes (Other)
  Sender: FDA-Public Use
  Company Number: US-BIOGEN-2019BI00718460

PATIENT
  Sex: Female

DRUGS (1)
  1. AVONEX [Suspect]
     Active Substance: INTERFERON BETA-1A
     Indication: MULTIPLE SCLEROSIS
     Route: 065
     Dates: start: 20010926, end: 20041104

REACTIONS (3)
  - Coeliac disease [Not Recovered/Not Resolved]
  - Impaired gastric emptying [Unknown]
  - Diabetes mellitus [Not Recovered/Not Resolved]
